FAERS Safety Report 24306813 (Version 3)
Quarter: 2025Q2

REPORT INFORMATION
  Report Type: Spontaneous
  Country: US (occurrence: US)
  Receive Date: 20240911
  Receipt Date: 20250604
  Transmission Date: 20250717
  Serious: Yes (Disabling, Other)
  Sender: REGENERON
  Company Number: US-REGENERON PHARMACEUTICALS, INC.-2024-109329

PATIENT
  Sex: Female

DRUGS (2)
  1. EYLEA HD [Suspect]
     Active Substance: AFLIBERCEPT
     Indication: Diabetic retinopathy
     Dosage: 8 MG, EVERY 5 WEEKS INTO BOTH EYES (FORMULATION: HD VIAL)
     Dates: start: 20240123, end: 20240123
  2. EYLEA HD [Suspect]
     Active Substance: AFLIBERCEPT
     Indication: Diabetic retinal oedema
     Dosage: 8 MG, EVERY 5 WEEKS INTO BOTH EYES (FORMULATION: HD VIAL)
     Dates: start: 20240227, end: 20240227

REACTIONS (4)
  - Blindness unilateral [Unknown]
  - Retinal vasculitis [Unknown]
  - Vision blurred [Unknown]
  - Wrong technique in product usage process [Unknown]

NARRATIVE: CASE EVENT DATE: 20240101
